FAERS Safety Report 6300644-6 (Version None)
Quarter: 2009Q3

REPORT INFORMATION
  Report Type: 
  Country: None (occurrence: None)
  Receive Date: 20090803
  Receipt Date: 20090720
  Transmission Date: 20100115
  Serious: Yes (Other)
  Sender: FDA-Public Use
  Company Number: ADR10772009

PATIENT
  Age: 76 Year
  Sex: Male

DRUGS (9)
  1. AMLODIPINE [Suspect]
     Dosage: 5 MG
  2. RAMIPRIL [Suspect]
     Dosage: 2.5 MG
  3. SIMVASTATIN [Suspect]
     Dosage: 20 MG
  4. OMEPRAZOLE [Concomitant]
  5. SERELIDE (1 DF) [Concomitant]
  6. TAMSULOSIN HYDROCHLORIDE (500 MG) [Concomitant]
  7. THEOPHYLLINE [Concomitant]
  8. TIOTROPIUM BROMIDE (1 DF) [Concomitant]
  9. VENTOLIN [Concomitant]

REACTIONS (3)
  - ASTHMA [None]
  - MEMORY IMPAIRMENT [None]
  - TRANSIENT ISCHAEMIC ATTACK [None]
